FAERS Safety Report 8776748 (Version 1)
Quarter: 2012Q4

REPORT INFORMATION
  Report Type: 
  Country: US (occurrence: US)
  Receive Date: 20120911
  Receipt Date: 20120911
  Transmission Date: 20130627
  Serious: Yes (Other)
  Sender: FDA-Public Use
  Company Number: US-PFIZER INC-2012181639

PATIENT
  Age: 38 Year
  Sex: Male
  Weight: 67.12 kg

DRUGS (5)
  1. PRISTIQ [Suspect]
     Indication: DEPRESSION
     Dosage: 50 mg, daily
     Route: 048
     Dates: start: 201206, end: 20120807
  2. LYRICA [Suspect]
     Indication: NEUROPATHY PERIPHERAL
     Dosage: 150 mg, daily
     Route: 048
     Dates: start: 20120812
  3. GABAPENTIN [Suspect]
     Indication: PAIN
     Dosage: 300 mg, daily
     Dates: start: 201204, end: 2012
  4. CYMBALTA [Suspect]
     Indication: DEPRESSION
     Dosage: UNK
     Dates: start: 2012, end: 2012
  5. TYLENOL [Suspect]
     Indication: HEADACHE
     Dosage: UNK
     Dates: start: 2012, end: 2012

REACTIONS (10)
  - Neuropathy peripheral [Unknown]
  - Tremor [Not Recovered/Not Resolved]
  - Muscle spasms [Not Recovered/Not Resolved]
  - Myoclonus [Recovering/Resolving]
  - Headache [Recovering/Resolving]
  - Heart rate increased [Unknown]
  - Discomfort [Unknown]
  - Muscle tightness [Unknown]
  - Toothache [Unknown]
  - Malaise [Unknown]
